FAERS Safety Report 6334656-3 (Version None)
Quarter: 2009Q3

REPORT INFORMATION
  Report Type: 
  Country: None (occurrence: None)
  Receive Date: 20090831
  Receipt Date: 20090824
  Transmission Date: 20100115
  Serious: Yes (Hospitalization, Disabling)
  Sender: FDA-Public Use
  Company Number: JP-BAYER-200912617BYL

PATIENT
  Age: 60 Year
  Sex: Male

DRUGS (3)
  1. NEXAVAR [Suspect]
     Indication: RENAL CELL CARCINOMA
     Dosage: TOTAL DAILY DOSE: 400 MG  UNIT DOSE: 200 MG
     Route: 048
     Dates: start: 20080519, end: 20090605
  2. AMLODIN [Concomitant]
     Indication: BLOOD PRESSURE INCREASED
     Dosage: TOTAL DAILY DOSE: 2.5 MG
     Route: 048
     Dates: start: 20080606, end: 20090606
  3. LEVOFLOXACIN [Concomitant]
     Indication: INFECTION
     Dosage: TOTAL DAILY DOSE: 200 MG
     Route: 048
     Dates: start: 20090125, end: 20090522

REACTIONS (1)
  - PANCREATIC PSEUDOCYST [None]
